FAERS Safety Report 4329472-8 (Version None)
Quarter: 2004Q1

REPORT INFORMATION
  Report Type: 
  Country: None (occurrence: None)
  Receive Date: 20040331
  Receipt Date: 20040331
  Transmission Date: 20041129
  Serious: Yes (Life-Threatening, Hospitalization, Disabling)
  Sender: FDA-Public Use
  Company Number: None

PATIENT
  Age: 88 Year
  Sex: Female
  Weight: 65.7716 kg

DRUGS (5)
  1. VIOXX [Suspect]
     Indication: ARTHRITIS
     Dosage: 25 MG PO Q DAY PTA
     Route: 048
  2. VIOXX [Suspect]
     Indication: CARDIAC DISORDER
     Dosage: 25 MG PO Q DAY PTA
     Route: 048
  3. VIOXX [Suspect]
     Indication: PROPHYLAXIS
     Dosage: 25 MG PO Q DAY PTA
     Route: 048
  4. MOBIC [Suspect]
     Indication: ARTHRITIS
     Dosage: 15 MG PO Q DAY PTA
     Route: 048
  5. ASPIRIN [Suspect]

REACTIONS (3)
  - APHASIA [None]
  - DECREASED APPETITE [None]
  - DUODENAL ULCER PERFORATION [None]
